FAERS Safety Report 23742409 (Version 1)
Quarter: 2024Q2

REPORT INFORMATION
  Report Type: Spontaneous
  Country: US (occurrence: None)
  Receive Date: 20240412
  Receipt Date: 20240412
  Transmission Date: 20240716
  Serious: No
  Sender: FDA-Public Use
  Company Number: None

PATIENT
  Age: 47 Year
  Sex: Female
  Weight: 69.75 kg

DRUGS (4)
  1. ESTRADIOL [Suspect]
     Active Substance: ESTRADIOL
     Indication: Menopause
     Dosage: 4  PATCHES  WEEKLY TRANSDERMAL
     Route: 062
     Dates: start: 20221125, end: 20240407
  2. VITAMIN D [Concomitant]
     Active Substance: VITAMIN D NOS
  3. ZINC [Concomitant]
     Active Substance: PYRITHIONE ZINC\ZINC\ZINC CHLORIDE
  4. BIOTIN [Concomitant]
     Active Substance: BIOTIN

REACTIONS (6)
  - Rash [None]
  - Back pain [None]
  - Mental impairment [None]
  - Disturbance in attention [None]
  - Alopecia [None]
  - Muscle spasms [None]

NARRATIVE: CASE EVENT DATE: 20231101
